FAERS Safety Report 25508256 (Version 2)
Quarter: 2025Q3

REPORT INFORMATION
  Report Type: Spontaneous
  Country: US (occurrence: US)
  Receive Date: 20250703
  Receipt Date: 20250707
  Transmission Date: 20251020
  Serious: Yes (Other)
  Sender: SANOFI AVENTIS
  Company Number: US-SA-2025SA186471

PATIENT
  Sex: Male

DRUGS (15)
  1. DUPIXENT [Suspect]
     Active Substance: DUPILUMAB
     Indication: Hypothyroidism
     Dosage: 300 MG, QOW
     Route: 058
  2. CLOPIDOGREL [Concomitant]
     Active Substance: CLOPIDOGREL BISULFATE
  3. GABAPENTIN [Concomitant]
     Active Substance: GABAPENTIN
  4. GLIPIZIDE [Concomitant]
     Active Substance: GLIPIZIDE
  5. JARDIANCE [Concomitant]
     Active Substance: EMPAGLIFLOZIN
  6. LEVOTHYROXINE [Concomitant]
     Active Substance: LEVOTHYROXINE
  7. METFORMIN HYDROCHLORIDE [Concomitant]
     Active Substance: METFORMIN HYDROCHLORIDE
  8. VITAMINS NOS [Concomitant]
     Active Substance: VITAMINS
  9. OMEPRAZOLE [Concomitant]
     Active Substance: OMEPRAZOLE
  10. OZEMPIC [Concomitant]
     Active Substance: SEMAGLUTIDE
  11. ROSUVASTATIN [Concomitant]
     Active Substance: ROSUVASTATIN
  12. TRIAMCINOLONE [Concomitant]
     Active Substance: TRIAMCINOLONE
  13. VASCEPA [Concomitant]
     Active Substance: ICOSAPENT ETHYL
  14. CYANOCOBALAMIN [Concomitant]
     Active Substance: CYANOCOBALAMIN
  15. VITAMIN D NOS [Concomitant]
     Active Substance: CHOLECALCIFEROL\ERGOCALCIFEROL

REACTIONS (11)
  - Diabetes mellitus [Unknown]
  - Blood glucose decreased [Unknown]
  - Eczema [Not Recovered/Not Resolved]
  - Skin burning sensation [Not Recovered/Not Resolved]
  - Pruritus [Not Recovered/Not Resolved]
  - Amnesia [Unknown]
  - Pain [Unknown]
  - Discomfort [Unknown]
  - Injection site pain [Unknown]
  - Injection site swelling [Recovered/Resolved]
  - Product use in unapproved indication [Unknown]
